FAERS Safety Report 5441168-8 (Version None)
Quarter: 2007Q3

REPORT INFORMATION
  Report Type: 
  Country: None (occurrence: None)
  Receive Date: 20070901
  Receipt Date: 20070821
  Transmission Date: 20080115
  Serious: Yes (Hospitalization)
  Sender: FDA-Public Use
  Company Number: IT-PFIZER INC-2007069549

PATIENT
  Sex: Female

DRUGS (8)
  1. LYRICA [Suspect]
     Indication: SKIN ULCER
     Route: 048
     Dates: start: 20070801, end: 20070813
  2. TORADOL [Suspect]
     Indication: SKIN ULCER
     Dosage: DAILY DOSE:60DROP
     Route: 048
     Dates: start: 20070801, end: 20070813
  3. TICLOPIDINE HCL [Concomitant]
     Route: 048
  4. TOTALIP [Concomitant]
  5. EUTIROX [Concomitant]
  6. LANITOP [Concomitant]
  7. ALDACTONE [Concomitant]
  8. TAVOR [Concomitant]

REACTIONS (3)
  - CONFUSIONAL STATE [None]
  - GASTRIC HAEMORRHAGE [None]
  - GASTRIC ULCER [None]
